FAERS Safety Report 9878101 (Version 1)
Quarter: 2014Q1

REPORT INFORMATION
  Report Type: Spontaneous
  Country: US (occurrence: US)
  Receive Date: 20140206
  Receipt Date: 20140206
  Transmission Date: 20141002
  Serious: No
  Sender: FDA-Public Use
  Company Number: US-BAYER-2014-012593

PATIENT
  Age: 53 Year
  Sex: Male

DRUGS (1)
  1. LEVITRA [Suspect]
     Indication: ERECTION INCREASED
     Dosage: UNK
     Route: 048
     Dates: start: 20131222

REACTIONS (1)
  - Drug ineffective [None]
